FAERS Safety Report 5778129-5 (Version None)
Quarter: 2008Q2

REPORT INFORMATION
  Report Type: 
  Country: None (occurrence: None)
  Receive Date: 20080618
  Receipt Date: 20080618
  Transmission Date: 20081010
  Serious: Yes (Life-Threatening, Hospitalization)
  Sender: FDA-Public Use
  Company Number: None

PATIENT
  Age: 56 Year
  Sex: Male
  Weight: 73.8 kg

DRUGS (8)
  1. VARENICLINE [Suspect]
  2. CLONAZEPAM [Concomitant]
  3. HYDROCODONE 5/ACETAMINOPHEN [Concomitant]
  4. METOPROLOL TARTRATE [Concomitant]
  5. CITALOPRAM HYDROBROMIDE [Concomitant]
  6. OMEPRAZOLE [Concomitant]
  7. AMLODIPINE BESYLATE [Concomitant]
  8. LISINOPRIL [Concomitant]

REACTIONS (1)
  - SUICIDAL IDEATION [None]
